FAERS Safety Report 24830852 (Version 2)
Quarter: 2025Q1

REPORT INFORMATION
  Report Type: Spontaneous
  Country: US (occurrence: US)
  Receive Date: 20250110
  Receipt Date: 20250122
  Transmission Date: 20250409
  Serious: No
  Sender: Harrow Health
  Company Number: US-IMP-2025000003

PATIENT
  Sex: Female

DRUGS (3)
  1. VEVYE [Suspect]
     Active Substance: CYCLOSPORINE
     Indication: Product used for unknown indication
     Dosage: LEFT EYE
     Route: 047
     Dates: start: 202412, end: 202501
  2. Preservative free Brim/tim/dore [Concomitant]
     Indication: Product used for unknown indication
     Dosage: LEFT EYE
     Route: 047
     Dates: start: 202403
  3. Preservative free prednisolone [Concomitant]
     Indication: Product used for unknown indication
     Dosage: LEFT EYE
     Route: 047
     Dates: start: 202409

REACTIONS (4)
  - Eye irritation [Recovered/Resolved]
  - Lacrimation increased [Recovered/Resolved]
  - Eye pain [Recovered/Resolved]
  - Visual impairment [Recovered/Resolved]
